FAERS Safety Report 6765329-0 (Version None)
Quarter: 2010Q2

REPORT INFORMATION
  Report Type: 
  Country: None (occurrence: None)
  Receive Date: 20100611
  Receipt Date: 20100528
  Transmission Date: 20101027
  Serious: Yes (Hospitalization)
  Sender: FDA-Public Use
  Company Number: DE-RANBAXY-2009RR-22607

PATIENT
  Age: 95 Year
  Sex: Male
  Weight: 60 kg

DRUGS (7)
  1. CARVEDILOL [Suspect]
     Indication: HYPERTENSION
     Dosage: 6.25 MG, BID
     Route: 048
     Dates: start: 20000101, end: 20081201
  2. DIGITOXIN [Suspect]
     Indication: CARDIAC FAILURE CHRONIC
     Dosage: 0.01 MG, QD
     Route: 048
     Dates: start: 20000101, end: 20081201
  3. ASPIRIN [Concomitant]
     Indication: PROPHYLAXIS
     Dosage: 50 MG, QD
     Route: 048
     Dates: start: 20000101, end: 20081208
  4. FUROSEMIDE [Concomitant]
     Indication: HYPERTENSION
     Dosage: 20 MG, QD
     Route: 048
     Dates: start: 20000101, end: 20081201
  5. GLIBENCLAMIDE [Concomitant]
     Indication: TYPE 2 DIABETES MELLITUS
     Dosage: 3.5-0-1.75
     Route: 048
     Dates: start: 20000101
  6. RAMIPRIL HEXAL COMP. 2.5MG/ 12.5 MG TABLETTEN [Concomitant]
     Indication: HYPERTENSION
     Dosage: 1 DF, QD
     Route: 048
     Dates: start: 20000101, end: 20081201
  7. TORSEMIDE [Concomitant]
     Indication: HYPERTENSION
     Dosage: 5 MG, QD
     Route: 048
     Dates: start: 20000101, end: 20081201

REACTIONS (1)
  - BRADYARRHYTHMIA [None]
